FAERS Safety Report 25972214 (Version 1)
Quarter: 2025Q4

REPORT INFORMATION
  Report Type: Spontaneous
  Country: US (occurrence: US)
  Receive Date: 20251029
  Receipt Date: 20251029
  Transmission Date: 20260117
  Serious: No
  Sender: GLAXOSMITHKLINE
  Company Number: US-GSK-US2025138993

PATIENT
  Age: 55 Year
  Sex: Female

DRUGS (2)
  1. TRELEGY ELLIPTA [Suspect]
     Active Substance: FLUTICASONE FUROATE\UMECLIDINIUM BROMIDE\VILANTEROL TRIFENATATE
     Indication: Chronic obstructive pulmonary disease
     Dosage: UNK, QD
     Dates: start: 20250312
  2. RESCUE [Concomitant]
     Indication: Chronic obstructive pulmonary disease
     Dosage: UNK, INHALER PRN

REACTIONS (1)
  - Muscle spasms [Not Recovered/Not Resolved]
